FAERS Safety Report 11132444 (Version 4)
Quarter: 2015Q3

REPORT INFORMATION
  Report Type: Report from Study
  Country: US (occurrence: US)
  Receive Date: 20150522
  Receipt Date: 20150810
  Transmission Date: 20151125
  Serious: Yes (Life-Threatening, Other)
  Sender: FDA-Public Use
  Company Number: US-AMGEN-USACT2015048512

PATIENT
  Age: 15 Year
  Sex: Male
  Weight: 51 kg

DRUGS (12)
  1. ZOSYN [Concomitant]
     Active Substance: PIPERACILLIN SODIUM\TAZOBACTAM SODIUM
     Dosage: 3375 MG, UNK
     Route: 042
     Dates: start: 20150501, end: 20150516
  2. VANCOCIN [Concomitant]
     Active Substance: VANCOMYCIN HYDROCHLORIDE
     Dosage: 720-1000 MG, UNK
     Route: 042
     Dates: start: 20150501, end: 20150515
  3. DECADRON [Concomitant]
     Active Substance: DEXAMETHASONE
     Dosage: 3 MG, UNK
     Route: 042
     Dates: start: 20150504, end: 20150524
  4. BACTRIM [Concomitant]
     Active Substance: SULFAMETHOXAZOLE\TRIMETHOPRIM
     Dosage: 80-120 MG, UNK
     Dates: start: 20150504, end: 20150526
  5. VANCOMYCIN [Concomitant]
     Active Substance: VANCOMYCIN
     Dosage: UNK
     Dates: start: 20150502
  6. MORPHINE [Concomitant]
     Active Substance: MORPHINE
     Dosage: 1 UNK, UNK
     Route: 042
     Dates: start: 20150502, end: 20150515
  7. CYCLOPHOSPHAMIDE. [Concomitant]
     Active Substance: CYCLOPHOSPHAMIDE
     Dosage: UNK
     Dates: start: 20141130
  8. MYCAMINE [Concomitant]
     Active Substance: MICAFUNGIN SODIUM
     Dosage: 50-150 MG, UNK
     Route: 042
     Dates: start: 20150502, end: 20150525
  9. BLINATUMOMAB [Suspect]
     Active Substance: BLINATUMOMAB
     Indication: ACUTE LYMPHOCYTIC LEUKAEMIA
     Dosage: 15 MUG/M2, UNK
     Route: 042
     Dates: start: 20150506, end: 20150516
  10. FLUDARABINE [Concomitant]
     Active Substance: FLUDARABINE PHOSPHATE
     Dosage: UNK
     Dates: start: 20141130
  11. DEXAMETHASONE. [Concomitant]
     Active Substance: DEXAMETHASONE
     Dosage: 7.9 MG, UNK
     Dates: start: 20150506, end: 20150506
  12. HYDROXYUREA. [Concomitant]
     Active Substance: HYDROXYUREA
     Dosage: UNK
     Dates: start: 20150402, end: 20150506

REACTIONS (2)
  - Cardiac failure [Recovered/Resolved]
  - Acute kidney injury [Recovered/Resolved]

NARRATIVE: CASE EVENT DATE: 20150516
